FAERS Safety Report 18652243 (Version 1)
Quarter: 2020Q4

REPORT INFORMATION
  Report Type: Spontaneous
  Country: JP (occurrence: JP)
  Receive Date: 20201222
  Receipt Date: 20201222
  Transmission Date: 20210114
  Serious: Yes (Life-Threatening, Other)
  Sender: FDA-Public Use
  Company Number: JP-EXELIXIS-CABO-20036109

PATIENT
  Sex: Male

DRUGS (1)
  1. CABOMETYX [Suspect]
     Active Substance: CABOZANTINIB S-MALATE
     Indication: NEOPLASM
     Dosage: 40 MILLIGRAM
     Route: 065
     Dates: start: 20200928

REACTIONS (1)
  - Aortic rupture [Recovered/Resolved]
